FAERS Safety Report 10193756 (Version 1)
Quarter: 2014Q2

REPORT INFORMATION
  Report Type: Spontaneous
  Country: US (occurrence: US)
  Receive Date: 20140524
  Receipt Date: 20140524
  Transmission Date: 20141212
  Serious: No
  Sender: FDA-Public Use
  Company Number: US-SANOFI-AVENTIS-2013SA042171

PATIENT
  Age: 82 Year
  Sex: Female
  Weight: 72.57 kg

DRUGS (4)
  1. LANTUS SOLOSTAR [Suspect]
     Indication: TYPE 2 DIABETES MELLITUS
     Dosage: TREATMENT START DATE: JUST UNDER 1 YEAR AGO DOSE:30 UNIT(S)
     Route: 058
     Dates: start: 201205
  2. SOLOSTAR [Suspect]
     Indication: DEVICE THERAPY
     Dosage: TREATMENT START DATE: JUST UNDER 1 YEAR AGO
  3. AGGRENOX [Concomitant]
     Dates: start: 2008
  4. NORVASC [Concomitant]

REACTIONS (2)
  - Stress [Unknown]
  - Blood glucose increased [Recovered/Resolved]
